FAERS Safety Report 4982157-7 (Version None)
Quarter: 2006Q2

REPORT INFORMATION
  Report Type: 
  Country: None (occurrence: None)
  Receive Date: 20060425
  Receipt Date: 20060104
  Transmission Date: 20061013
  Serious: Yes (Hospitalization, Disabling)
  Sender: FDA-Public Use
  Company Number: US-MERCK-0601USA00561

PATIENT
  Age: 45 Year
  Sex: Female
  Weight: 90 kg

DRUGS (13)
  1. VIOXX [Suspect]
     Indication: ARTHRITIS
     Route: 048
     Dates: start: 20011106, end: 20040811
  2. TRICOR [Concomitant]
     Indication: BLOOD CHOLESTEROL INCREASED
     Route: 065
     Dates: start: 20020401, end: 20031101
  3. ULTRACET [Concomitant]
     Indication: PAIN
     Route: 065
     Dates: start: 20011101, end: 20050701
  4. AMITRIPTYLINE HYDROCHLORIDE [Concomitant]
     Route: 065
     Dates: start: 19991201
  5. PREDNISONE [Concomitant]
     Route: 065
     Dates: start: 20020801, end: 20040801
  6. PREMARIN [Concomitant]
     Indication: HORMONE REPLACEMENT THERAPY
     Route: 065
     Dates: start: 19880101, end: 20040801
  7. ZYRTEC [Concomitant]
     Route: 065
  8. AMARYL [Concomitant]
     Route: 065
  9. BUSPIRONE HYDROCHLORIDE [Concomitant]
     Route: 065
  10. PULMICORT [Concomitant]
     Route: 065
  11. ALBUTEROL [Concomitant]
     Route: 065
  12. FOLIC ACID [Concomitant]
     Route: 065
  13. ZELNORM [Concomitant]
     Route: 065

REACTIONS (11)
  - ARTERIOSCLEROSIS [None]
  - CORONARY ARTERY DISEASE [None]
  - DIABETES MELLITUS [None]
  - GASTROOESOPHAGEAL REFLUX DISEASE [None]
  - HAEMATEMESIS [None]
  - HAEMATOCHEZIA [None]
  - HYPERTENSION [None]
  - IRON DEFICIENCY [None]
  - MYOCARDIAL INFARCTION [None]
  - STOMACH DISCOMFORT [None]
  - VENTRICULAR DYSFUNCTION [None]
